FAERS Safety Report 15822558 (Version 3)
Quarter: 2019Q1

REPORT INFORMATION
  Report Type: Spontaneous
  Country: RO (occurrence: RO)
  Receive Date: 20190114
  Receipt Date: 20190212
  Transmission Date: 20190417
  Serious: Yes (Death)
  Sender: FDA-Public Use
  Company Number: RO-ASTRAZENECA-2019SE05364

PATIENT
  Age: 65 Year
  Sex: Male

DRUGS (6)
  1. SORTIS [Concomitant]
     Active Substance: ATORVASTATIN
  2. SYMBICORT [Suspect]
     Active Substance: BUDESONIDE\FORMOTEROL FUMARATE DIHYDRATE
     Indication: CHRONIC OBSTRUCTIVE PULMONARY DISEASE
     Dosage: 320 MCG/9 MCG, 2 INHALATIONS, DAILY
     Route: 055
     Dates: start: 2017
  3. TROMBOSTOP [Concomitant]
     Active Substance: ACENOCOUMAROL
  4. VENTOLIN [Concomitant]
     Active Substance: ALBUTEROL SULFATE
  5. SPIRONOLACTONE. [Concomitant]
     Active Substance: SPIRONOLACTONE
  6. FUROSEMIDE. [Concomitant]
     Active Substance: FUROSEMIDE

REACTIONS (3)
  - Nasopharyngitis [Fatal]
  - Neoplasm [Unknown]
  - Chronic obstructive pulmonary disease [Unknown]
